FAERS Safety Report 15358260 (Version 1)
Quarter: 2018Q3

REPORT INFORMATION
  Report Type: Spontaneous
  Country: US (occurrence: US)
  Receive Date: 20180830
  Receipt Date: 20180830
  Transmission Date: 20181010
  Serious: No
  Sender: FDA-Public Use
  Company Number: None

PATIENT
  Age: 27 Year
  Sex: Female

DRUGS (2)
  1. ULTRAVIST [Suspect]
     Active Substance: IOPROMIDE
     Indication: ABDOMINAL PAIN
     Route: 041
     Dates: start: 20180314
  2. ULTRAVIST [Suspect]
     Active Substance: IOPROMIDE
     Indication: PELVIC PAIN
     Route: 041
     Dates: start: 20180314

REACTIONS (3)
  - Contrast media reaction [None]
  - Urticaria [None]
  - Dyspnoea [None]

NARRATIVE: CASE EVENT DATE: 20180814
